FAERS Safety Report 24096572 (Version 1)
Quarter: 2024Q3

REPORT INFORMATION
  Report Type: Spontaneous
  Country: US (occurrence: None)
  Receive Date: 20240716
  Receipt Date: 20240716
  Transmission Date: 20241017
  Serious: No
  Sender: Public
  Company Number: None

PATIENT
  Sex: Female
  Weight: 69.9 kg

DRUGS (1)
  1. VYXEOS [Suspect]
     Active Substance: CYTARABINE\DAUNORUBICIN
     Dates: end: 20240709

REACTIONS (12)
  - Tachypnoea [None]
  - Hypopnoea [None]
  - Bradycardia [None]
  - Hypotension [None]
  - Pulmonary oedema [None]
  - Pleural effusion [None]
  - Generalised oedema [None]
  - Haemoglobin decreased [None]
  - Neutrophil count decreased [None]
  - Platelet count decreased [None]
  - Atrial flutter [None]
  - Carditis [None]

NARRATIVE: CASE EVENT DATE: 20240710
